FAERS Safety Report 12562271 (Version 1)
Quarter: 2016Q3

REPORT INFORMATION
  Report Type: Report from Study
  Country: US (occurrence: US)
  Receive Date: 20160715
  Receipt Date: 20160715
  Transmission Date: 20161109
  Serious: Yes (Hospitalization, Other)
  Sender: FDA-Public Use
  Company Number: US-GILEAD-2016-0215451

PATIENT
  Age: 68 Year
  Sex: Female

DRUGS (1)
  1. SOFOSBUVIR [Suspect]
     Active Substance: SOFOSBUVIR
     Indication: HEPATITIS C
     Dosage: 400 MG, QD
     Route: 048
     Dates: start: 20160509

REACTIONS (11)
  - Headache [Unknown]
  - Memory impairment [Unknown]
  - Asthenia [Unknown]
  - Abdominal pain upper [Unknown]
  - Rash [Unknown]
  - Rosacea [Unknown]
  - Drug dose omission [Unknown]
  - Irritable bowel syndrome [Unknown]
  - Weight decreased [Unknown]
  - Pneumonia [Unknown]
  - Perihepatic discomfort [Unknown]
